FAERS Safety Report 7606951-9 (Version None)
Quarter: 2011Q3

REPORT INFORMATION
  Report Type: 
  Country: None (occurrence: None)
  Receive Date: 20110706
  Receipt Date: 20110621
  Transmission Date: 20111222
  Serious: Yes (Hospitalization)
  Sender: FDA-Public Use
  Company Number: CL-2011-03

PATIENT
  Age: 58 Year
  Sex: Male
  Weight: 120.2032 kg

DRUGS (11)
  1. LISINOPRIL [Concomitant]
  2. THYROID TAB [Concomitant]
  3. PSEUDOEPHEDRINE HCL [Concomitant]
  4. EPINEPHRINE INHALATION AEROSOL, 125 MCG/PUFF [Suspect]
     Indication: ASTHMA
     Dosage: BLINDED STUDY
     Dates: start: 20110526, end: 20110606
  5. METFORMIN HCL [Concomitant]
  6. LORATADINE [Concomitant]
  7. ASPIRIN [Concomitant]
  8. NAPROXEN [Concomitant]
  9. ALBUTEROL SULFATE AUTOHALER [Concomitant]
  10. ST. JOHN'S WORT [Concomitant]
  11. DIPHENHYDRAMINE HCL [Concomitant]

REACTIONS (2)
  - DYSPNOEA [None]
  - COUGH [None]
